FAERS Safety Report 8104486-0 (Version None)
Quarter: 2012Q1

REPORT INFORMATION
  Report Type: 
  Country: None (occurrence: None)
  Receive Date: 20120130
  Receipt Date: 20120124
  Transmission Date: 20120608
  Serious: Yes (Life-Threatening, Hospitalization)
  Sender: FDA-Public Use
  Company Number: PHEH2011US06764

PATIENT
  Sex: Female
  Weight: 52.154 kg

DRUGS (8)
  1. INSULIN [Concomitant]
     Dosage: PRN
     Route: 058
  2. EXJADE [Suspect]
     Indication: IRON OVERLOAD
     Dosage: 1000 MG, BID
     Route: 048
     Dates: start: 20110204, end: 20111010
  3. HYDRALAZINE HCL [Concomitant]
     Dosage: 25 MG, TID
     Route: 048
  4. ACTONEL [Concomitant]
     Dosage: 50 MG, QMO
     Route: 048
  5. COREG [Concomitant]
     Dosage: 3.125 MG, BID
     Route: 048
  6. PREDNISONE TAB [Concomitant]
     Dosage: 4 MG, DAILY
     Route: 048
  7. ANTIBIOTICS [Concomitant]
  8. CYCLOSPORINE [Concomitant]

REACTIONS (9)
  - GENERAL PHYSICAL HEALTH DETERIORATION [None]
  - THROMBOCYTOPENIA [None]
  - PNEUMOCYSTIS JIROVECI PNEUMONIA [None]
  - SEPSIS [None]
  - ANAEMIA [None]
  - RESPIRATORY FAILURE [None]
  - PANCYTOPENIA [None]
  - ACINETOBACTER BACTERAEMIA [None]
  - LEUKOPENIA [None]
